FAERS Safety Report 8041550-9 (Version None)
Quarter: 2012Q1

REPORT INFORMATION
  Report Type: 
  Country: None (occurrence: None)
  Receive Date: 20120109
  Receipt Date: 20111222
  Transmission Date: 20120608
  Serious: Yes (Hospitalization, Other)
  Sender: FDA-Public Use
  Company Number: 2011SP026441

PATIENT
  Age: 30 Year
  Sex: Female
  Weight: 110.2241 kg

DRUGS (3)
  1. NUVARING [Suspect]
     Dates: start: 20080703, end: 20090626
  2. NUVARING [Suspect]
     Dates: start: 20060601, end: 20090626
  3. NUVARING [Suspect]
     Dates: start: 20040501, end: 20070910

REACTIONS (26)
  - FIBROMYALGIA [None]
  - SPINAL OSTEOARTHRITIS [None]
  - MEMORY IMPAIRMENT [None]
  - MUSCULOSKELETAL PAIN [None]
  - PHLEBITIS SUPERFICIAL [None]
  - PULMONARY EMBOLISM [None]
  - HEADACHE [None]
  - SINUSITIS [None]
  - BREAST PAIN [None]
  - BREAST DISCHARGE [None]
  - DEPRESSION [None]
  - ATELECTASIS [None]
  - DEEP VEIN THROMBOSIS [None]
  - GASTROOESOPHAGEAL REFLUX DISEASE [None]
  - OEDEMA PERIPHERAL [None]
  - ANXIETY [None]
  - IRRITABLE BOWEL SYNDROME [None]
  - PREGNANCY [None]
  - THIRST [None]
  - INTERVERTEBRAL DISC DEGENERATION [None]
  - MULTIPLE INJURIES [None]
  - FATIGUE [None]
  - COSTOCHONDRITIS [None]
  - ABDOMINAL PAIN [None]
  - HYPOAESTHESIA [None]
  - VOMITING [None]
